FAERS Safety Report 9231960 (Version 1)
Quarter: 2013Q2

REPORT INFORMATION
  Report Type: Spontaneous
  Country: US (occurrence: US)
  Receive Date: 20130415
  Receipt Date: 20130415
  Transmission Date: 20140414
  Serious: Yes (Disabling, Other)
  Sender: FDA-Public Use
  Company Number: CHPA2013US006036

PATIENT
  Age: 85 Year
  Sex: Female

DRUGS (2)
  1. BUCKLEY^S MIXTURE (USA) [Suspect]
     Indication: NASOPHARYNGITIS
     Dosage: UNK, UNK
     Route: 048
  2. BUCKLEY^S MIXTURE (USA) [Suspect]
     Indication: THROAT IRRITATION

REACTIONS (3)
  - Walking aid user [Not Recovered/Not Resolved]
  - Accident [Recovered/Resolved]
  - Off label use [Unknown]
